FAERS Safety Report 7734831 (Version 2)
Quarter: 2013Q1

REPORT INFORMATION
  Report Type: Spontaneous
  Country: MY (occurrence: MY)
  Receive Date: 20101223
  Receipt Date: 20130115
  Transmission Date: 20140127
  Serious: Yes (Life-Threatening, Hospitalization)
  Sender: FDA-Public Use
  Company Number: PHHY2010MY86959

PATIENT
  Sex: Male

DRUGS (1)
  1. CLOZARIL [Suspect]
     Indication: SCHIZOAFFECTIVE DISORDER
     Dosage: 200 MG, QD

REACTIONS (27)
  - Catatonia [Unknown]
  - Neuroleptic malignant syndrome [Unknown]
  - Unresponsive to stimuli [Unknown]
  - Pyrexia [Unknown]
  - Blood pressure increased [Unknown]
  - Tachycardia [Unknown]
  - Cogwheel rigidity [Unknown]
  - Mutism [Unknown]
  - Muscle rigidity [Unknown]
  - Musculoskeletal stiffness [Unknown]
  - Coma scale abnormal [Unknown]
  - Stupor [Unknown]
  - Blood creatine phosphokinase increased [Unknown]
  - Cerebral atrophy [Unknown]
  - White blood cell count increased [Unknown]
  - Masked facies [Unknown]
  - Autonomic nervous system imbalance [Unknown]
  - Tremor [Unknown]
  - Speech disorder [Unknown]
  - Dyskinesia [Unknown]
  - Psychotic disorder [Unknown]
  - Paranoia [Unknown]
  - Delusion [Unknown]
  - Hallucinations, mixed [Unknown]
  - Fear [Unknown]
  - Pneumonia aspiration [Recovering/Resolving]
  - Drug withdrawal syndrome [Recovered/Resolved]
